FAERS Safety Report 7850513-5 (Version None)
Quarter: 2011Q4

REPORT INFORMATION
  Report Type: 
  Country: None (occurrence: None)
  Receive Date: 20111026
  Receipt Date: 20111026
  Transmission Date: 20120403
  Serious: Yes (Other)
  Sender: FDA-Public Use
  Company Number: None

PATIENT
  Age: 39 Year
  Sex: Female
  Weight: 61.234 kg

DRUGS (1)
  1. HEPARIN SODIUM [Suspect]
     Indication: THROMBOSIS PROPHYLAXIS
     Dosage: .7ML
     Route: 058
     Dates: start: 20111011, end: 20111016

REACTIONS (8)
  - RASH [None]
  - PRURITUS [None]
  - OEDEMA GENITAL [None]
  - SKIN INFECTION [None]
  - CONTUSION [None]
  - SWELLING [None]
  - SKIN DISORDER [None]
  - ENTEROCOCCUS TEST POSITIVE [None]
